FAERS Safety Report 4771600-4 (Version None)
Quarter: 2005Q3

REPORT INFORMATION
  Report Type: 
  Country: None (occurrence: None)
  Receive Date: 20050916
  Receipt Date: 20050809
  Transmission Date: 20060218
  Serious: Yes (Hospitalization)
  Sender: FDA-Public Use
  Company Number: JP-SP-2005-01537

PATIENT
  Age: 59 Year
  Sex: Male

DRUGS (4)
  1. IMMUCYST [Suspect]
     Indication: BLADDER CANCER
     Route: 043
     Dates: start: 20050407, end: 20050519
  2. IMMUCYST [Suspect]
     Route: 043
     Dates: start: 20050407, end: 20050519
  3. IMMUCYST [Suspect]
     Route: 043
     Dates: start: 20050407, end: 20050519
  4. IMMUCYST [Suspect]
     Route: 043
     Dates: start: 20050407, end: 20050519

REACTIONS (7)
  - ARTHRALGIA [None]
  - BLADDER STENOSIS [None]
  - DYSURIA [None]
  - HAEMATURIA [None]
  - POLLAKIURIA [None]
  - REITER'S SYNDROME [None]
  - URINARY BLADDER ATROPHY [None]
